FAERS Safety Report 24762144 (Version 1)
Quarter: 2024Q4

REPORT INFORMATION
  Report Type: Spontaneous
  Country: US (occurrence: US)
  Receive Date: 20241221
  Receipt Date: 20241221
  Transmission Date: 20250115
  Serious: Yes (Death, Hospitalization, Other)
  Sender: ALEXION PHARMACEUTICALS
  Company Number: US-ASTRAZENECA-202412USA016343US

PATIENT

DRUGS (18)
  1. SEROQUEL [Suspect]
     Active Substance: QUETIAPINE FUMARATE
  2. SEROQUEL [Suspect]
     Active Substance: QUETIAPINE FUMARATE
     Route: 048
  3. SEROQUEL [Suspect]
     Active Substance: QUETIAPINE FUMARATE
  4. SEROQUEL [Suspect]
     Active Substance: QUETIAPINE FUMARATE
     Route: 048
  5. CLONAZEPAM [Suspect]
     Active Substance: CLONAZEPAM
     Route: 048
  6. CLONAZEPAM [Suspect]
     Active Substance: CLONAZEPAM
  7. ALPRAZOLAM [Suspect]
     Active Substance: ALPRAZOLAM
     Route: 048
  8. ALPRAZOLAM [Suspect]
     Active Substance: ALPRAZOLAM
  9. ESZOPICLONE [Suspect]
     Active Substance: ESZOPICLONE
     Route: 048
  10. ESZOPICLONE [Suspect]
     Active Substance: ESZOPICLONE
  11. DIPHENHYDRAMINE [Suspect]
     Active Substance: DIPHENHYDRAMINE
     Route: 048
  12. DIPHENHYDRAMINE [Suspect]
     Active Substance: DIPHENHYDRAMINE
  13. CLONIDINE [Suspect]
     Active Substance: CLONIDINE
     Route: 048
  14. CLONIDINE [Suspect]
     Active Substance: CLONIDINE
  15. DEMANNOSE [Suspect]
     Active Substance: DEMANNOSE
     Route: 048
  16. DEMANNOSE [Suspect]
     Active Substance: DEMANNOSE
  17. FERULIC ACID [Suspect]
     Active Substance: FERULIC ACID
     Route: 048
  18. FERULIC ACID [Suspect]
     Active Substance: FERULIC ACID

REACTIONS (3)
  - Toxicity to various agents [Fatal]
  - Completed suicide [Fatal]
  - Cardio-respiratory arrest [Fatal]
